FAERS Safety Report 7050406-X (Version None)
Quarter: 2010Q4

REPORT INFORMATION
  Report Type: 
  Country: None (occurrence: None)
  Receive Date: 20101018
  Receipt Date: 20101006
  Transmission Date: 20110411
  Serious: Yes (Other)
  Sender: FDA-Public Use
  Company Number: DE-PFIZER INC-2010074446

PATIENT
  Age: 81 Year
  Sex: Female
  Weight: 83 kg

DRUGS (7)
  1. LYRICA [Suspect]
     Indication: METABOLIC SYNDROME
     Dosage: 75 MG, 3X/DAY
     Route: 048
     Dates: start: 20080101, end: 20100501
  2. GABAPENTIN [Concomitant]
     Dosage: 100 MG, 1X/DAY
  3. FENTANYL [Concomitant]
     Dosage: 25 UNK, EVERY THREE DAYS
  4. AMLODIPINE [Concomitant]
     Dosage: 10 UNK, 1X/DAY
  5. LANTUS [Concomitant]
     Dosage: 22 IU, 1X/DAY
  6. MARCUMAR [Concomitant]
     Dosage: UNK
  7. ALLOPURINOL [Concomitant]
     Dosage: 150 UNK, 1X/DAY (HALF OF 300)

REACTIONS (15)
  - ANXIETY [None]
  - ASTHENIA [None]
  - CHILLS [None]
  - DEPRESSION [None]
  - DIZZINESS [None]
  - FATIGUE [None]
  - HEADACHE [None]
  - HYPERHIDROSIS [None]
  - INFLUENZA LIKE ILLNESS [None]
  - NAUSEA [None]
  - NERVOUSNESS [None]
  - PAIN [None]
  - SLEEP DISORDER [None]
  - SUICIDAL IDEATION [None]
  - WITHDRAWAL SYNDROME [None]
